FAERS Safety Report 4950864-8 (Version None)
Quarter: 2006Q1

REPORT INFORMATION
  Report Type: 
  Country: None (occurrence: None)
  Receive Date: 20060322
  Receipt Date: 20060314
  Transmission Date: 20060701
  Serious: Yes (Hospitalization)
  Sender: FDA-Public Use
  Company Number: FR-NOVOPROD-251637

PATIENT
  Age: 45 Year
  Sex: Female

DRUGS (8)
  1. ACTRAPID [Suspect]
     Indication: DIABETES MELLITUS INSULIN-DEPENDENT
     Dates: start: 20050105, end: 20050110
  2. CORVASAL [Concomitant]
     Dates: start: 20050107, end: 20050107
  3. DOBUTAMINE HCL [Concomitant]
     Route: 042
     Dates: start: 20050103, end: 20050110
  4. LOVENOX [Concomitant]
     Route: 058
     Dates: start: 20050103, end: 20050107
  5. XENETIX [Concomitant]
     Route: 042
     Dates: start: 20050107, end: 20050107
  6. NOROXIN [Concomitant]
     Indication: URINARY TRACT INFECTION
     Dosage: 800 MG, UNK
     Dates: start: 20050101, end: 20050122
  7. DIGOXIN [Concomitant]
     Dates: start: 20050105
  8. KALEORID [Concomitant]
     Dates: start: 20050105

REACTIONS (4)
  - ARTERIOPATHIC DISEASE [None]
  - GOITRE [None]
  - THROMBOSIS [None]
  - VASCULAR PURPURA [None]
